FAERS Safety Report 4715635-6 (Version None)
Quarter: 2005Q3

REPORT INFORMATION
  Report Type: 
  Country: None (occurrence: None)
  Receive Date: 20050715
  Receipt Date: 20050715
  Transmission Date: 20060218
  Serious: Yes (Death)
  Sender: FDA-Public Use
  Company Number: None

PATIENT
  Age: 19 Year
  Sex: Male
  Weight: 81.6475 kg

DRUGS (2)
  1. OXYCONTIN [Suspect]
     Indication: INJURY
  2. OXYCONTIN [Suspect]
     Indication: ROAD TRAFFIC ACCIDENT

REACTIONS (4)
  - CARDIAC FAILURE [None]
  - DRUG DEPENDENCE [None]
  - RESPIRATORY FAILURE [None]
  - SELF-MEDICATION [None]
